FAERS Safety Report 8263574-9 (Version None)
Quarter: 2012Q2

REPORT INFORMATION
  Report Type: 
  Country: None (occurrence: None)
  Receive Date: 20120405
  Receipt Date: 20120328
  Transmission Date: 20120825
  Serious: Yes (Other)
  Sender: FDA-Public Use
  Company Number: CHPA2012US005787

PATIENT
  Age: 60 Year
  Sex: Female

DRUGS (4)
  1. VOLTAREN [Suspect]
     Indication: PRURITUS
     Dosage: 1 TABLESPOON, UNK
     Route: 061
     Dates: start: 20090101
  2. CYMBALTA [Concomitant]
     Indication: DEPRESSION
     Dosage: 3DF DAILY
  3. HYDROCODONE BITARTRATE [Concomitant]
     Indication: PAIN
     Dosage: 3DF DAILY
  4. LANTUS [Concomitant]
     Indication: DIABETES MELLITUS
     Dosage: 35UNITS AT BEDTIME

REACTIONS (8)
  - SKIN HAEMORRHAGE [None]
  - DRUG ADMINISTERED AT INAPPROPRIATE SITE [None]
  - SYSTEMIC LUPUS ERYTHEMATOSUS [None]
  - MUSCLE SPASMS [None]
  - OFF LABEL USE [None]
  - SCRATCH [None]
  - RASH [None]
  - WRONG TECHNIQUE IN DRUG USAGE PROCESS [None]
